FAERS Safety Report 6962606-5 (Version None)
Quarter: 2010Q3

REPORT INFORMATION
  Report Type: 
  Country: None (occurrence: None)
  Receive Date: 20100902
  Receipt Date: 20100823
  Transmission Date: 20110219
  Serious: Yes (Other)
  Sender: FDA-Public Use
  Company Number: US-JNJCH-2010018377

PATIENT
  Age: 62 Year
  Sex: Female
  Weight: 85.7 kg

DRUGS (2)
  1. LISTERINE TOTAL CARE ANTICAVITY MOUTHWASH [Suspect]
     Indication: DENTAL DISORDER PROPHYLAXIS
     Dosage: TEXT:TWO TEASPOONFULS AS DIRECTED ONCE DAILY
     Route: 048
     Dates: start: 20100730, end: 20100730
  2. DRUG USED IN DIABETES [Concomitant]
     Indication: DIABETES PROPHYLAXIS
     Dosage: TEXT:UNKNOWN
     Route: 048

REACTIONS (10)
  - AGEUSIA [None]
  - ANXIETY [None]
  - APPLICATION SITE BURN [None]
  - INSOMNIA [None]
  - LACERATION [None]
  - ORAL MUCOSAL DISCOLOURATION [None]
  - PAIN [None]
  - PARAESTHESIA [None]
  - RASH [None]
  - SKIN FISSURES [None]
